FAERS Safety Report 4690706-1 (Version None)
Quarter: 2005Q2

REPORT INFORMATION
  Report Type: 
  Country: None (occurrence: None)
  Receive Date: 20050615
  Receipt Date: 20050503
  Transmission Date: 20051028
  Serious: Yes (Other)
  Sender: FDA-Public Use
  Company Number: AU-GLAXOSMITHKLINE-B0379997A

PATIENT
  Age: 58 Year
  Sex: Male

DRUGS (1)
  1. NICABATE CQ 4MG LOZENGE [Suspect]
     Route: 002

REACTIONS (7)
  - ABDOMINAL PAIN UPPER [None]
  - DRUG ABUSER [None]
  - NAUSEA [None]
  - PANCREATITIS [None]
  - PEPTIC ULCER [None]
  - TENDONITIS [None]
  - TREATMENT NONCOMPLIANCE [None]
